FAERS Safety Report 4998431-4 (Version None)
Quarter: 2006Q2

REPORT INFORMATION
  Report Type: 
  Country: None (occurrence: None)
  Receive Date: 20060508
  Receipt Date: 20060427
  Transmission Date: 20061013
  Serious: Yes (Hospitalization)
  Sender: FDA-Public Use
  Company Number: CIP06000836

PATIENT
  Age: 53 Year
  Sex: Female
  Weight: 36.5 kg

DRUGS (1)
  1. ACTONEL [Suspect]
     Indication: OSTEOPOROSIS
     Dosage: 2.5 MG DAILY, ORAL
     Route: 048
     Dates: start: 20030401

REACTIONS (8)
  - AUTOIMMUNE HEPATITIS [None]
  - CHOLESTASIS [None]
  - CONDITION AGGRAVATED [None]
  - FATIGUE [None]
  - HEPATIC FIBROSIS [None]
  - HEPATOCELLULAR DAMAGE [None]
  - HYPERTROPHY [None]
  - LIVER DISORDER [None]
